FAERS Safety Report 4882245-X (Version None)
Quarter: 2006Q1

REPORT INFORMATION
  Report Type: 
  Country: None (occurrence: None)
  Receive Date: 20060117
  Receipt Date: 20060110
  Transmission Date: 20060701
  Serious: Yes (Other)
  Sender: FDA-Public Use
  Company Number: US-AVENTIS-200610306US

PATIENT
  Sex: Female

DRUGS (2)
  1. ALLEGRA [Suspect]
     Indication: RHINITIS ALLERGIC
     Dosage: DOSE: 60/120
     Route: 048
     Dates: start: 20020401, end: 20051101
  2. RHINOCORT [Concomitant]
     Indication: RHINITIS ALLERGIC
     Dosage: DOSE: UNKNOWN

REACTIONS (3)
  - AMPHETAMINES POSITIVE [None]
  - DRUG DEPENDENCE [None]
  - SYNCOPE [None]
